FAERS Safety Report 20822264 (Version 1)
Quarter: 2022Q2

REPORT INFORMATION
  Report Type: Spontaneous
  Country: US (occurrence: US)
  Receive Date: 20220512
  Receipt Date: 20220512
  Transmission Date: 20220720
  Serious: No
  Sender: FDA-Public Use
  Company Number: US-PFIZER INC-202200175736

PATIENT
  Age: 68 Year
  Sex: Female
  Weight: 71.21 kg

DRUGS (2)
  1. LIOTHYRONINE SODIUM [Suspect]
     Active Substance: LIOTHYRONINE SODIUM
     Indication: Hypothyroidism
     Dosage: 25 UG, 2X/DAY
  2. LIOTHYRONINE SODIUM [Suspect]
     Active Substance: LIOTHYRONINE SODIUM
     Indication: Tri-iodothyronine uptake abnormal
     Dosage: 50 UG, DAILY

REACTIONS (2)
  - Drug ineffective [Unknown]
  - Malaise [Unknown]
